FAERS Safety Report 7444047-X (Version None)
Quarter: 2011Q2

REPORT INFORMATION
  Report Type: 
  Country: None (occurrence: None)
  Receive Date: 20110429
  Receipt Date: 20110421
  Transmission Date: 20111010
  Serious: No
  Sender: FDA-Public Use
  Company Number: US-BIOGENIDEC-2011BI015239

PATIENT
  Age: 29 Year
  Sex: Female

DRUGS (2)
  1. TYSABRI [Suspect]
     Indication: MULTIPLE SCLEROSIS
     Route: 042
     Dates: start: 20110224, end: 20110324
  2. TYSABRI [Suspect]
     Route: 042
     Dates: start: 20090730, end: 20090924

REACTIONS (2)
  - INFECTION [None]
  - ENDOMETRIAL ABLATION [None]
